FAERS Safety Report 24811267 (Version 4)
Quarter: 2025Q1

REPORT INFORMATION
  Report Type: Report from Study
  Country: CO (occurrence: CO)
  Receive Date: 20250106
  Receipt Date: 20250310
  Transmission Date: 20250409
  Serious: Yes (Life-Threatening, Hospitalization, Disabling, Other)
  Sender: NOVARTIS
  Company Number: CO-002147023-NVSC2024CO114692

PATIENT
  Age: 77 Year
  Sex: Female
  Weight: 60 kg

DRUGS (4)
  1. ELTROMBOPAG OLAMINE [Suspect]
     Active Substance: ELTROMBOPAG OLAMINE
     Indication: Immune thrombocytopenia
     Dosage: 50 MG, QD (ONCE DAILY)
     Route: 048
     Dates: start: 20171115
  2. ELTROMBOPAG OLAMINE [Suspect]
     Active Substance: ELTROMBOPAG OLAMINE
     Route: 065
     Dates: start: 2023
  3. ELTROMBOPAG OLAMINE [Suspect]
     Active Substance: ELTROMBOPAG OLAMINE
     Route: 065
  4. ELTROMBOPAG OLAMINE [Suspect]
     Active Substance: ELTROMBOPAG OLAMINE
     Dosage: 75 MG, QD
     Route: 048
     Dates: start: 202412

REACTIONS (17)
  - Platelet count decreased [Unknown]
  - Critical illness [Unknown]
  - Decreased immune responsiveness [Unknown]
  - Infection [Unknown]
  - Decreased appetite [Not Recovered/Not Resolved]
  - Depressed mood [Not Recovered/Not Resolved]
  - Platelet count increased [Unknown]
  - General physical health deterioration [Unknown]
  - Thrombosis [Recovered/Resolved]
  - Thrombosis [Unknown]
  - Swelling [Unknown]
  - Fluid retention [Unknown]
  - Body height decreased [Unknown]
  - Pain [Unknown]
  - Product availability issue [Unknown]
  - Ear disorder [Unknown]
  - Weight decreased [Unknown]

NARRATIVE: CASE EVENT DATE: 20241101
